FAERS Safety Report 6907643-1 (Version None)
Quarter: 2010Q3

REPORT INFORMATION
  Report Type: 
  Country: None (occurrence: None)
  Receive Date: 20100719
  Receipt Date: 20100517
  Transmission Date: 20110219
  Serious: Yes (Other)
  Sender: FDA-Public Use
  Company Number: 2010062531

PATIENT
  Age: 70 Year
  Sex: Female

DRUGS (2)
  1. CORTEF [Suspect]
     Dosage: 10 MG, 3X/DAY, ORAL
     Route: 048
  2. CLINDAMYCIN HCL [Concomitant]

REACTIONS (1)
  - HYPERHIDROSIS [None]
